FAERS Safety Report 24303574 (Version 5)
Quarter: 2024Q4

REPORT INFORMATION
  Report Type: Spontaneous
  Country: RU (occurrence: RU)
  Receive Date: 20240910
  Receipt Date: 20241121
  Transmission Date: 20250114
  Serious: Yes (Other)
  Sender: NOVARTIS
  Company Number: RU-002147023-NVSC2024RU180481

PATIENT
  Age: 48 Year
  Sex: Female

DRUGS (1)
  1. IMATINIB [Suspect]
     Active Substance: IMATINIB
     Indication: Product used for unknown indication
     Dosage: 400 MG, QD (FOR 8 YEARS)
     Route: 065

REACTIONS (5)
  - Philadelphia chromosome positive [Unknown]
  - Sinus tachycardia [Unknown]
  - Supraventricular extrasystoles [Unknown]
  - Loss of therapeutic response [Unknown]
  - Drug resistance [Unknown]
